FAERS Safety Report 13278786 (Version 9)
Quarter: 2019Q2

REPORT INFORMATION
  Report Type: Report from Study
  Country: US (occurrence: US)
  Receive Date: 20170228
  Receipt Date: 20190506
  Transmission Date: 20190711
  Serious: Yes (Hospitalization)
  Sender: FDA-Public Use
  Company Number: US-ACTELION-A-US2017-150190

PATIENT
  Age: 74 Year
  Sex: Female

DRUGS (5)
  1. VITAMIN B12 [Concomitant]
     Active Substance: CYANOCOBALAMIN
     Dosage: UNK, Q1WEEK X 4 WEEKS
  2. VITAMIN B12 [Concomitant]
     Active Substance: CYANOCOBALAMIN
     Dosage: UNK, Q1MONTH
  3. OPSUMIT [Suspect]
     Active Substance: MACITENTAN
     Dosage: 10 MG, QD
     Route: 048
     Dates: start: 20170328
  4. REVATIO [Suspect]
     Active Substance: SILDENAFIL CITRATE
     Indication: PRODUCT USED FOR UNKNOWN INDICATION
     Dosage: UNK
     Route: 065
  5. OPSUMIT [Suspect]
     Active Substance: MACITENTAN
     Indication: PULMONARY ARTERIAL HYPERTENSION
     Dosage: 10 MG, QD
     Route: 048
     Dates: start: 20170105

REACTIONS (17)
  - Bronchiectasis [Unknown]
  - Vomiting [Unknown]
  - Pneumonia [Recovering/Resolving]
  - Dyspnoea [Unknown]
  - Hypotension [Recovered/Resolved]
  - Dyspnoea exertional [Recovering/Resolving]
  - Asthenia [Unknown]
  - Nausea [Unknown]
  - Unevaluable event [Unknown]
  - Life expectancy shortened [Unknown]
  - Dysphonia [Unknown]
  - Scleroderma [Unknown]
  - Sepsis [Recovering/Resolving]
  - Multi-organ disorder [Recovering/Resolving]
  - Condition aggravated [Unknown]
  - Cardiac failure congestive [Recovering/Resolving]
  - Blood potassium decreased [Unknown]

NARRATIVE: CASE EVENT DATE: 20170130
